FAERS Safety Report 25419122 (Version 2)
Quarter: 2025Q4

REPORT INFORMATION
  Report Type: Report from Study
  Country: CA (occurrence: CA)
  Receive Date: 20250610
  Receipt Date: 20251126
  Transmission Date: 20260118
  Serious: No
  Sender: BRISTOL-MYERS SQUIBB COMPANY
  Company Number: CA-BRISTOL-MYERS SQUIBB COMPANY-2025-067788

PATIENT
  Age: 50 Year
  Sex: Female
  Weight: 87.5 kg

DRUGS (5)
  1. ORENCIA [Suspect]
     Active Substance: ABATACEPT
     Indication: Rheumatoid arthritis
     Route: 058
     Dates: start: 20250422
  2. Sulfasalazine (azulfidine) [Concomitant]
     Indication: Product used for unknown indication
     Dosage: ONGOING
  3. PLAQUENIL [Concomitant]
     Active Substance: HYDROXYCHLOROQUINE SULFATE
     Indication: Product used for unknown indication
     Dosage: ONGOING
  4. Methotrexate (Trexall) [Concomitant]
     Indication: Product used for unknown indication
     Dosage: ONGOING
  5. Methotrexate (Otrexup) [Concomitant]
     Indication: Product used for unknown indication
     Dosage: ONGOING

REACTIONS (1)
  - Device issue [Unknown]
